FAERS Safety Report 8018728-3 (Version None)
Quarter: 2012Q1

REPORT INFORMATION
  Report Type: 
  Country: None (occurrence: None)
  Receive Date: 20120103
  Receipt Date: 20111223
  Transmission Date: 20120608
  Serious: Yes (Hospitalization)
  Sender: FDA-Public Use
  Company Number: CA-US-EMD SERONO, INC.-7103812

PATIENT
  Sex: Female

DRUGS (2)
  1. CHEMO AGENTS [Suspect]
  2. REBIF [Suspect]
     Indication: MULTIPLE SCLEROSIS
     Route: 058
     Dates: start: 20020213

REACTIONS (2)
  - LOSS OF CONSCIOUSNESS [None]
  - BLINDNESS [None]
